FAERS Safety Report 6142532-4 (Version None)
Quarter: 2009Q2

REPORT INFORMATION
  Report Type: 
  Country: None (occurrence: None)
  Receive Date: 20090403
  Receipt Date: 20090303
  Transmission Date: 20091009
  Serious: No
  Sender: FDA-Public Use
  Company Number: US-BAYER-200915629NA

PATIENT
  Sex: Female

DRUGS (3)
  1. CIPRO [Suspect]
     Indication: CELLULITIS
     Dosage: TOTAL DAILY DOSE: 1000 MG
     Dates: start: 20081101, end: 20090101
  2. CIPRO [Suspect]
     Dosage: TOTAL DAILY DOSE: 500 MG
     Dates: start: 20090101, end: 20090101
  3. CIPRO [Suspect]
     Dosage: TOTAL DAILY DOSE: 250 MG
     Dates: start: 20090101

REACTIONS (1)
  - ARTHRALGIA [None]
